FAERS Safety Report 8101189-3 (Version None)
Quarter: 2012Q1

REPORT INFORMATION
  Report Type: 
  Country: None (occurrence: None)
  Receive Date: 20120129
  Receipt Date: 20111013
  Transmission Date: 20120608
  Serious: No
  Sender: FDA-Public Use
  Company Number: US-ABBOTT-11P-163-0864070-00

PATIENT
  Age: 36 Year
  Sex: Female

DRUGS (4)
  1. HUMIRA [Suspect]
     Indication: CROHN'S DISEASE
     Dates: start: 20110928, end: 20111012
  2. HUMIRA [Suspect]
  3. NUVARING [Concomitant]
     Indication: CONTRACEPTION
     Route: 067
  4. LIALDA [Concomitant]
     Indication: CROHN'S DISEASE
     Dosage: DAILY
     Dates: start: 20110701

REACTIONS (9)
  - FATIGUE [None]
  - JOINT SWELLING [None]
  - SINUSITIS [None]
  - SINUS CONGESTION [None]
  - SKIN EXFOLIATION [None]
  - ADVERSE DRUG REACTION [None]
  - NASAL DRYNESS [None]
  - HAEMOPTYSIS [None]
  - SWELLING FACE [None]
